FAERS Safety Report 12240173 (Version 2)
Quarter: 2016Q2

REPORT INFORMATION
  Report Type: Spontaneous
  Country: US (occurrence: US)
  Receive Date: 20160405
  Receipt Date: 20160428
  Transmission Date: 20160815
  Serious: No
  Sender: FDA-Public Use
  Company Number: US-ACTELION PHARMACEUTICALS US, INC.-A-US2016-133356

PATIENT
  Age: 65 Year
  Sex: Female

DRUGS (1)
  1. VALCHLOR [Suspect]
     Active Substance: MECHLORETHAMINE
     Indication: MYCOSIS FUNGOIDES
     Dosage: UNK, QD
     Route: 061
     Dates: start: 20160218

REACTIONS (7)
  - Application site inflammation [Unknown]
  - Application site pain [Unknown]
  - Application site pruritus [Unknown]
  - Erythema [Unknown]
  - Depressed mood [Unknown]
  - Application site erythema [Unknown]
  - Asthenia [Unknown]
